FAERS Safety Report 10525279 (Version 1)
Quarter: 2014Q4

REPORT INFORMATION
  Report Type: Spontaneous
  Country: US (occurrence: None)
  Receive Date: 20141015
  Receipt Date: 20141015
  Transmission Date: 20150528
  Serious: Yes (Other)
  Sender: FDA-Public Use
  Company Number: None

PATIENT
  Age: 48 Year
  Sex: Female
  Weight: 68.04 kg

DRUGS (1)
  1. MIRVASO [Suspect]
     Active Substance: BRIMONIDINE TARTRATE
     Indication: ROSACEA
     Dosage: 3 TO 4 DAYS, ONCE DAILY

REACTIONS (5)
  - Skin irritation [None]
  - Erythema [None]
  - Dry skin [None]
  - Flushing [None]
  - Skin discolouration [None]

NARRATIVE: CASE EVENT DATE: 20140221
